FAERS Safety Report 12287141 (Version 1)
Quarter: 2016Q2

REPORT INFORMATION
  Report Type: Not Available
  Country: None (occurrence: US)
  Receive Date: 20160420
  Receipt Date: 20160420
  Transmission Date: 20160815
  Serious: No
  Sender: FDA-Public Use
  Company Number: US-AKORN-25821

PATIENT
  Sex: Female

DRUGS (1)
  1. TIMOLOL MALEATE OPHTHALMIC SOLUTION [Suspect]
     Active Substance: TIMOLOL MALEATE

REACTIONS (3)
  - Eye irritation [Recovered/Resolved]
  - Skin tightness [Recovered/Resolved]
  - Erythema of eyelid [Recovered/Resolved]
